FAERS Safety Report 4352355-4 (Version None)
Quarter: 2004Q2

REPORT INFORMATION
  Report Type: 
  Country: None (occurrence: None)
  Receive Date: 20040427
  Receipt Date: 20030815
  Transmission Date: 20050107
  Serious: Yes (Disabling)
  Sender: FDA-Public Use
  Company Number: WAES 0308USA01751

PATIENT
  Age: 19 Year
  Sex: Female
  Weight: 57.1532 kg

DRUGS (7)
  1. SINGULAIR [Suspect]
     Indication: ASTHMA
     Dosage: 10 MG/DAILY/PO
     Route: 048
     Dates: start: 19990325, end: 20030801
  2. SINGULAIR [Suspect]
     Indication: RHINITIS ALLERGIC
     Dosage: 10 MG/DAILY/PO
     Route: 048
     Dates: start: 19990325, end: 20030801
  3. SINGULAIR [Suspect]
     Indication: ASTHMA
     Dosage: 10 MG/DAILY/PO
     Route: 048
     Dates: start: 20030101
  4. SINGULAIR [Suspect]
     Indication: RHINITIS ALLERGIC
     Dosage: 10 MG/DAILY/PO
     Route: 048
     Dates: start: 20030101
  5. ADVAIR DISKUS 100/50 [Concomitant]
  6. NEXIUM [Concomitant]
  7. ALBUTEROL [Concomitant]

REACTIONS (1)
  - PANCREATITIS [None]
